FAERS Safety Report 4280289-2 (Version None)
Quarter: 2004Q1

REPORT INFORMATION
  Report Type: 
  Country: None (occurrence: None)
  Receive Date: 20040126
  Receipt Date: 20040113
  Transmission Date: 20041129
  Serious: Yes (Hospitalization)
  Sender: FDA-Public Use
  Company Number: A123070

PATIENT
  Age: 55 Year
  Sex: Female
  Weight: 90.7194 kg

DRUGS (12)
  1. GEODON [Suspect]
     Indication: BIPOLAR DISORDER
     Dosage: BID
     Dates: start: 20010701
  2. BENZATROPINE BESILATE (BENZATROPINE BESILATE) [Concomitant]
  3. HYDROXYZINE EMBONATE (HYDROXYZINE EMBONATE) [Concomitant]
  4. BUPROPION HYDROCHLORIDE [Concomitant]
  5. LITHIUM CARBONATE [Concomitant]
  6. RISPERIDONE [Concomitant]
  7. BISACODYL (BISACODYL) [Concomitant]
  8. IBUPROFEN [Concomitant]
  9. LOPERAMIDE HYDROCHLORIDE [Concomitant]
  10. ACETYLSALICYLIC ACID SRT [Concomitant]
  11. PSEUDOEPHEDRINE HYDROCHLORIDE (PSEUDOEPHEDRINE HYDROCHLORIDE) [Concomitant]
  12. HALOPERIDOL [Concomitant]

REACTIONS (10)
  - CHLOROPSIA [None]
  - DECREASED APPETITE [None]
  - DIZZINESS [None]
  - DRUG INEFFECTIVE [None]
  - ERYTHROPSIA [None]
  - FATIGUE [None]
  - MENTAL IMPAIRMENT [None]
  - SOMNOLENCE [None]
  - THINKING ABNORMAL [None]
  - UNEXPECTED THERAPEUTIC DRUG EFFECT [None]
